FAERS Safety Report 10787818 (Version 1)
Quarter: 2015Q1

REPORT INFORMATION
  Report Type: Spontaneous
  Country: TR (occurrence: None)
  Receive Date: 20150210
  Receipt Date: 20150210
  Transmission Date: 20150721
  Serious: Yes (Hospitalization)
  Sender: FDA-Public Use
  Company Number: IPC201501-000064

PATIENT
  Age: 18 Year
  Sex: Female

DRUGS (2)
  1. METOPROLOL TARTRATE (METOPROLOL TARTRATE) (METOPROLOL TARTRATE) [Suspect]
     Active Substance: METOPROLOL TARTRATE
  2. SALICYLATE [Suspect]
     Active Substance: SALICYLIC ACID

REACTIONS (2)
  - Toxicity to various agents [None]
  - Stupor [None]
